FAERS Safety Report 5944377-4 (Version None)
Quarter: 2008Q4

REPORT INFORMATION
  Report Type: 
  Country: None (occurrence: None)
  Receive Date: 20081106
  Receipt Date: 20081106
  Transmission Date: 20090506
  Serious: Yes (Other)
  Sender: FDA-Public Use
  Company Number: None

PATIENT
  Age: 26 Year
  Sex: Female
  Weight: 65.7716 kg

DRUGS (2)
  1. BUDEPRION - GNC FOR WELBUTRON X1 150 MG [Suspect]
     Indication: ATTENTION DEFICIT/HYPERACTIVITY DISORDER
     Dosage: 150MG 1/DY PO
     Route: 048
     Dates: start: 20080806, end: 20080816
  2. BUDEPRION - GNC FOR WELBUTRON X1 150 MG [Suspect]
     Indication: DEPRESSION
     Dosage: 150MG 1/DY PO
     Route: 048
     Dates: start: 20080806, end: 20080816

REACTIONS (11)
  - ABNORMAL BEHAVIOUR [None]
  - ANXIETY [None]
  - CHEST DISCOMFORT [None]
  - CRYING [None]
  - DEPRESSION [None]
  - DYSPNOEA [None]
  - MORBID THOUGHTS [None]
  - PANIC REACTION [None]
  - PARANOIA [None]
  - THERAPEUTIC RESPONSE UNEXPECTED WITH DRUG SUBSTITUTION [None]
  - THINKING ABNORMAL [None]
